FAERS Safety Report 5601879-8 (Version None)
Quarter: 2008Q1

REPORT INFORMATION
  Report Type: 
  Country: None (occurrence: None)
  Receive Date: 20080124
  Receipt Date: 20080112
  Transmission Date: 20080703
  Serious: Yes (Other)
  Sender: FDA-Public Use
  Company Number: US-PFIZER INC-2008005014

PATIENT
  Sex: Female
  Weight: 97.5 kg

DRUGS (5)
  1. CHANTIX [Suspect]
     Indication: SMOKING CESSATION THERAPY
     Route: 048
  2. GEODON [Concomitant]
  3. BUSPAR [Concomitant]
  4. LIPITOR [Concomitant]
  5. LAMICTAL [Concomitant]

REACTIONS (2)
  - AGGRESSION [None]
  - ANGER [None]
